FAERS Safety Report 11673032 (Version 1)
Quarter: 2015Q4

REPORT INFORMATION
  Report Type: Spontaneous
  Country: US (occurrence: US)
  Receive Date: 20151027
  Receipt Date: 20151027
  Transmission Date: 20160304
  Serious: No
  Sender: FDA-Public Use
  Company Number: US-ELI_LILLY_AND_COMPANY-US201003003055

PATIENT
  Sex: Female

DRUGS (2)
  1. FORTEO [Suspect]
     Active Substance: TERIPARATIDE
     Indication: OSTEOPOROSIS
     Dosage: 20 UG, DAILY (1/D)
  2. FORTEO [Suspect]
     Active Substance: TERIPARATIDE
     Dosage: 20 UG, DAILY (1/D)

REACTIONS (10)
  - Pain in extremity [Not Recovered/Not Resolved]
  - Malaise [Unknown]
  - Depression [Unknown]
  - Feeling abnormal [Unknown]
  - Arthritis [Unknown]
  - Sleep disorder due to a general medical condition [Unknown]
  - Constipation [Recovering/Resolving]
  - Muscle spasms [Not Recovered/Not Resolved]
  - Crying [Unknown]
  - Myalgia [Not Recovered/Not Resolved]
